FAERS Safety Report 10466078 (Version 1)
Quarter: 2014Q3

REPORT INFORMATION
  Report Type: Spontaneous
  Country: US (occurrence: None)
  Receive Date: 20140919
  Receipt Date: 20140919
  Transmission Date: 20150326
  Serious: Yes (Other)
  Sender: FDA-Public Use
  Company Number: None

PATIENT
  Age: 39 Year
  Sex: Male
  Weight: 91.4 kg

DRUGS (2)
  1. PREDNISONE TAPER [Concomitant]
     Active Substance: PREDNISONE
  2. FLEBOGAMMA DIF [Suspect]
     Active Substance: HUMAN IMMUNOGLOBULIN G
     Indication: IMMUNODEFICIENCY COMMON VARIABLE
     Route: 042
     Dates: start: 20140523, end: 20140523

REACTIONS (4)
  - Muscle spasms [None]
  - Back pain [None]
  - Chest pain [None]
  - Musculoskeletal pain [None]

NARRATIVE: CASE EVENT DATE: 20140523
